FAERS Safety Report 9648932 (Version 1)
Quarter: 2013Q4

REPORT INFORMATION
  Report Type: Spontaneous
  Country: US (occurrence: None)
  Receive Date: 20131025
  Receipt Date: 20131025
  Transmission Date: 20140711
  Serious: No
  Sender: FDA-Public Use
  Company Number: None

PATIENT
  Age: 57 Year
  Sex: Female
  Weight: 58.97 kg

DRUGS (1)
  1. CIPROFLOXACIN TABLETS, USP [Suspect]
     Indication: URINARY TRACT INFECTION
     Dosage: 9/30-10/20  500MG, BID, ORAL
     Route: 049

REACTIONS (2)
  - Rash [None]
  - Pruritus [None]
